FAERS Safety Report 20168865 (Version 1)
Quarter: 2021Q4

REPORT INFORMATION
  Report Type: Report from Study
  Country: CA (occurrence: CA)
  Receive Date: 20211210
  Receipt Date: 20211210
  Transmission Date: 20220303
  Serious: Yes (Hospitalization)
  Sender: FDA-Public Use
  Company Number: CA-ABBVIE-21K-028-4192687-00

PATIENT
  Sex: Female

DRUGS (1)
  1. HUMIRA [Suspect]
     Active Substance: ADALIMUMAB
     Indication: Crohn^s disease
     Route: 058
     Dates: start: 20150703

REACTIONS (5)
  - Bile acid malabsorption [Unknown]
  - Feeding disorder [Unknown]
  - Intra-abdominal fluid collection [Unknown]
  - Night sweats [Unknown]
  - Emotional distress [Unknown]

NARRATIVE: CASE EVENT DATE: 20210101
